FAERS Safety Report 13663444 (Version 2)
Quarter: 2017Q3

REPORT INFORMATION
  Report Type: Spontaneous
  Country: US (occurrence: US)
  Receive Date: 20170619
  Receipt Date: 20170707
  Transmission Date: 20171127
  Serious: No
  Sender: FDA-Public Use
  Company Number: US-PFIZER INC-2016436737

PATIENT
  Age: 56 Year
  Sex: Female

DRUGS (36)
  1. LYRICA [Suspect]
     Active Substance: PREGABALIN
     Indication: NEUROPATHY PERIPHERAL
     Dosage: 75 MG, 3X/DAY
     Route: 048
     Dates: start: 20160902
  2. HYDROCODONE/ACETAMINOPHEN [Concomitant]
     Active Substance: ACETAMINOPHEN\HYDROCODONE
     Indication: PAIN
     Dosage: UNK UNK, AS NEEDED [HYDROCODONE: 7.5MG/ PARACETAMOL: 325MG] [1 TAB THREE TIMES A DAY IF NEEDED]
     Route: 048
     Dates: start: 20141103
  3. GUAR GUM [Concomitant]
     Active Substance: GUAR GUM
     Indication: SUPPLEMENTATION THERAPY
     Dosage: 2 DF, DAILY
     Dates: start: 20120613
  4. OMEPRAZOLE. [Concomitant]
     Active Substance: OMEPRAZOLE
     Indication: GASTROOESOPHAGEAL REFLUX DISEASE
     Dosage: 20 MG, UNK
     Route: 048
  5. MELOXICAM. [Concomitant]
     Active Substance: MELOXICAM
     Indication: CERVICAL RADICULOPATHY
     Dosage: 15 MG, 1X/DAY [TAKE 1 TABLET BY MOUTH ONCE DAILY WITH FOOD OR MILK]
     Route: 048
     Dates: start: 20091202
  6. FLUTICASONE PROPIONATE. [Concomitant]
     Active Substance: FLUTICASONE PROPIONATE
     Indication: POSTMENOPAUSAL HAEMORRHAGE
     Dosage: UNK UNK, 1X/DAY [50 MCG/ACT] [INSERT 1 TO 2 SPRAYS INTO EACH NOSTRIL ONCE DAILY]
     Route: 045
     Dates: start: 20140529
  7. FLUTICASONE PROPIONATE. [Concomitant]
     Active Substance: FLUTICASONE PROPIONATE
     Indication: ACUTE SINUSITIS
  8. CLARITIN [Concomitant]
     Active Substance: LORATADINE
     Dosage: 10 MG, AS NEEDED [TAKE 1 TABLET DAILY AS NEEDED]
     Route: 048
  9. VENTOLIN HFA [Concomitant]
     Active Substance: ALBUTEROL SULFATE
     Indication: ASTHMA
     Dosage: UNK UNK, AS NEEDED [EVERY 4 TO 6 HOURS IF NEEDED]
     Route: 048
     Dates: start: 20150928
  10. LORAZEPAM. [Concomitant]
     Active Substance: LORAZEPAM
     Indication: VERTIGO POSITIONAL
     Dosage: 1 MG, AS NEEDED [TAKE 1 TABLET BY MOUTH TWICE A DAY IF NEEDED]
     Route: 048
     Dates: start: 20130508
  11. BACLOFEN. [Concomitant]
     Active Substance: BACLOFEN
     Indication: PAIN
     Dosage: 10 MG, 3X/DAY
     Route: 048
     Dates: start: 20101011
  12. ONDANSETRON [Concomitant]
     Active Substance: ONDANSETRON
     Indication: VOMITING
  13. VENTOLIN HFA [Concomitant]
     Active Substance: ALBUTEROL SULFATE
     Indication: WHEEZING
  14. BACLOFEN. [Concomitant]
     Active Substance: BACLOFEN
     Indication: MUSCLE SPASMS
     Dosage: 10 MG, AS NEEDED [TAKE 1 TABLET BY MOUTH THREE TIMES A DAY IF NEEDED]
     Route: 048
  15. BACLOFEN. [Concomitant]
     Active Substance: BACLOFEN
     Dosage: UNK UNK, 2X/DAY [; TAKE 1/2 TO 1 TABLET UP TO TWICE A DAY]
     Route: 048
  16. PAROXETINE HCL [Concomitant]
     Active Substance: PAROXETINE HYDROCHLORIDE
     Indication: DEPRESSION
     Dosage: 20 MG, 1X/DAY
     Route: 048
  17. PREDNISONE. [Concomitant]
     Active Substance: PREDNISONE
     Dosage: 20 MG, 1X/DAY [TAKE 2 TABLETS BY MOUTH ONCE DAILY FOR 3 DAYS]
     Route: 048
  18. VENTOLIN HFA [Concomitant]
     Active Substance: ALBUTEROL SULFATE
     Indication: DYSPNOEA
  19. LORAZEPAM. [Concomitant]
     Active Substance: LORAZEPAM
     Indication: INSOMNIA
  20. MIRTAZAPINE. [Concomitant]
     Active Substance: MIRTAZAPINE
     Indication: INSOMNIA
     Dosage: UNK, 1X/DAY [TAKE 1/2 TABLET BY MOUTH AT BEDTIME]
     Route: 048
  21. ONDANSETRON [Concomitant]
     Active Substance: ONDANSETRON
     Indication: NAUSEA
     Dosage: 4 MG, AS NEEDED [TAKE 1 TABLET BY MOUTH EVERY 4 HOURS IF NEEDED]
     Route: 048
     Dates: start: 20140612
  22. BENZONATATE. [Concomitant]
     Active Substance: BENZONATATE
     Indication: ACUTE SINUSITIS
  23. PREDNISONE. [Concomitant]
     Active Substance: PREDNISONE
     Indication: COUGH
     Dosage: 40 MG, 1X/DAY [TAKE 4 TABLETS BY MOUTH ONCE DAILY FOR 4 DAYS]
     Route: 048
  24. MIRTAZAPINE. [Concomitant]
     Active Substance: MIRTAZAPINE
     Indication: DEPRESSION
     Dosage: 30 MG, 1X/DAY [TAKE 1 TABLET BY MOUTH AT BEDTIME]
     Route: 048
     Dates: start: 20141027
  25. OMEPRAZOLE. [Concomitant]
     Active Substance: OMEPRAZOLE
     Indication: GASTROOESOPHAGEAL REFLUX DISEASE
     Dosage: 20 MG, 1X/DAY
     Route: 048
     Dates: start: 20100521
  26. PREDNISONE. [Concomitant]
     Active Substance: PREDNISONE
     Indication: ASTHMA
     Dosage: UNK [4 TABS X 3 DAYS, 3 TABS X 3 DAYS, 2 TABS X 3 DAYS]
     Route: 048
     Dates: start: 20120405
  27. MELOXICAM. [Concomitant]
     Active Substance: MELOXICAM
     Indication: SPINAL OSTEOARTHRITIS
  28. DULOXETINE HCL [Concomitant]
     Active Substance: DULOXETINE HYDROCHLORIDE
     Indication: PAIN
     Dosage: 30 MG, 1X/DAY
     Route: 048
     Dates: start: 20150312
  29. PREDNISONE. [Concomitant]
     Active Substance: PREDNISONE
     Dosage: 30 MG, 1X/DAY [3 TABLETS BY MOUTH ONCE DAILY FOR 4 DAYS]
     Route: 048
  30. PREDNISONE. [Concomitant]
     Active Substance: PREDNISONE
     Dosage: 10 MG, DAILY
  31. MELOXICAM. [Concomitant]
     Active Substance: MELOXICAM
     Indication: PAIN
     Dosage: 15 MG, UNK
     Route: 048
  32. DULOXETINE HCL [Concomitant]
     Active Substance: DULOXETINE HYDROCHLORIDE
     Indication: DEPRESSION
  33. CENTRUM [Concomitant]
     Active Substance: VITAMINS
     Indication: SUPPLEMENTATION THERAPY
     Dosage: 1 DF, DAILY
     Route: 048
     Dates: start: 20120613
  34. GABAPENTIN. [Concomitant]
     Active Substance: GABAPENTIN
     Indication: NEUROPATHY PERIPHERAL
     Dosage: 100 MG, 2X/DAY
     Route: 048
     Dates: start: 20160801
  35. BENZONATATE. [Concomitant]
     Active Substance: BENZONATATE
     Indication: POSTMENOPAUSAL HAEMORRHAGE
     Dosage: 200 MG, AS NEEDED [TAKE 1 CAPSULE 3 TIMES DAILY AS NEEDED]
     Route: 048
     Dates: start: 20141016
  36. PAROXETINE HCL [Concomitant]
     Active Substance: PAROXETINE HYDROCHLORIDE
     Dosage: 20 MG, UNK
     Route: 048

REACTIONS (12)
  - Increased bronchial secretion [Unknown]
  - Hot flush [Unknown]
  - Tympanic membrane disorder [Unknown]
  - Affect lability [Unknown]
  - Ear discomfort [Unknown]
  - Wheezing [Unknown]
  - Sinus congestion [Unknown]
  - Condition aggravated [Unknown]
  - Lacrimation increased [Unknown]
  - Asthma [Unknown]
  - Hypersensitivity [Unknown]
  - Rales [Unknown]
